FAERS Safety Report 16185410 (Version 1)
Quarter: 2019Q2

REPORT INFORMATION
  Report Type: Spontaneous
  Country: US (occurrence: US)
  Receive Date: 20190308
  Receipt Date: 20190308
  Transmission Date: 20190711
  Serious: No
  Sender: FDA-Public Use
  Company Number: None

PATIENT
  Age: 64 Year
  Sex: Female
  Weight: 66.22 kg

DRUGS (12)
  1. LOSARTAN. [Concomitant]
     Active Substance: LOSARTAN
  2. GLUCOSAMINE [Concomitant]
     Active Substance: GLUCOSAMINE
  3. MIRENA [Concomitant]
     Active Substance: LEVONORGESTREL
  4. CLINDAMYCIN. [Suspect]
     Active Substance: CLINDAMYCIN
     Indication: DENTAL OPERATION
     Dosage: ?          QUANTITY:1 PILL;OTHER FREQUENCY:4X/DAY *EVERY 6HRS;?
     Route: 048
     Dates: start: 20190215, end: 20190222
  5. PEPCID [Concomitant]
     Active Substance: FAMOTIDINE
  6. WELLBUTRIN [Concomitant]
     Active Substance: BUPROPION HYDROCHLORIDE
  7. CALCIUM [Concomitant]
     Active Substance: CALCIUM
  8. FISH OIL [Concomitant]
     Active Substance: FISH OIL
  9. VIT D [Concomitant]
     Active Substance: VITAMIN D NOS
  10. MEMEST [Concomitant]
  11. LAMICTAL [Concomitant]
     Active Substance: LAMOTRIGINE
  12. VIT K2 [Concomitant]

REACTIONS (3)
  - Sensation of foreign body [None]
  - Chest pain [None]
  - Product use complaint [None]

NARRATIVE: CASE EVENT DATE: 20190220
